FAERS Safety Report 22843498 (Version 7)
Quarter: 2023Q4

REPORT INFORMATION
  Report Type: Report from Study
  Country: US (occurrence: US)
  Receive Date: 20230821
  Receipt Date: 20231208
  Transmission Date: 20240109
  Serious: No
  Sender: FDA-Public Use
  Company Number: US-002147023-NVSC2023US181639

PATIENT
  Age: 40 Year
  Sex: Male

DRUGS (3)
  1. COSENTYX [Suspect]
     Active Substance: SECUKINUMAB
     Indication: Psoriasis
     Dosage: UNK
     Route: 065
  2. COSENTYX [Suspect]
     Active Substance: SECUKINUMAB
     Dosage: 300 MG, QW
     Route: 058
     Dates: start: 20230927
  3. CLOBETASOL [Suspect]
     Active Substance: CLOBETASOL
     Indication: Psoriasis
     Dosage: UNK
     Route: 065

REACTIONS (11)
  - Hyperhidrosis [Unknown]
  - Injection site pain [Unknown]
  - Psoriasis [Unknown]
  - Rash [Unknown]
  - Rash pruritic [Unknown]
  - Macule [Unknown]
  - Papule [Unknown]
  - Melanocytic naevus [Unknown]
  - Lentigo [Unknown]
  - Incorrect route of product administration [Unknown]
  - Therapeutic product effect incomplete [Unknown]

NARRATIVE: CASE EVENT DATE: 20231006
